FAERS Safety Report 9034561 (Version 3)
Quarter: 2013Q3

REPORT INFORMATION
  Report Type: Report from Study
  Country: BR (occurrence: BR)
  Receive Date: 20130128
  Receipt Date: 20130913
  Transmission Date: 20140515
  Serious: Yes (Life-Threatening)
  Sender: FDA-Public Use
  Company Number: PHHO2013BR001451

PATIENT
  Age: 68 Year
  Sex: Male
  Weight: 63 kg

DRUGS (5)
  1. ACZ885 [Suspect]
     Indication: CARDIOVASCULAR EVENT PROPHYLAXIS
     Dosage: 300 MG, UNK
     Route: 058
     Dates: start: 20111107, end: 20120514
  2. ENALAPRIL [Concomitant]
     Indication: HYPERTENSION
     Dosage: 20 MG, BID
     Dates: start: 20111011
  3. ASPIRIN [Concomitant]
     Indication: CORONARY ARTERY DISEASE
     Dosage: 100 MG, DAILY
  4. ATORVASTATIN [Concomitant]
     Indication: CORONARY ARTERY DISEASE
     Dosage: 40 MG, DAILY
     Dates: start: 20111011
  5. AMLODIPINE [Concomitant]
     Indication: HYPERTENSION
     Dosage: 5 MG, DAILY
     Dates: start: 20111011

REACTIONS (1)
  - Rectal cancer [Recovering/Resolving]
